FAERS Safety Report 9395827 (Version 2)
Quarter: 2013Q3

REPORT INFORMATION
  Report Type: Spontaneous
  Country: US (occurrence: US)
  Receive Date: 20130711
  Receipt Date: 20130823
  Transmission Date: 20140515
  Serious: Yes (Hospitalization)
  Sender: FDA-Public Use
  Company Number: US-GLAXOSMITHKLINE-A1027369A

PATIENT
  Age: 66 Year
  Sex: Female
  Weight: 80.5 kg

DRUGS (19)
  1. FLOLAN [Suspect]
     Indication: PULMONARY ARTERIAL HYPERTENSION
     Dosage: 13NGKM CONTINUOUS
     Route: 042
     Dates: start: 20130612
  2. OXYGEN [Concomitant]
  3. ADCIRCA [Concomitant]
  4. TRACLEER [Concomitant]
  5. LANOXIN [Concomitant]
  6. LASIX [Concomitant]
  7. ULTRAM [Concomitant]
  8. LIDODERM [Concomitant]
  9. PREPARATION H [Concomitant]
  10. MIRALAX [Concomitant]
  11. COUMADIN [Concomitant]
  12. FLOLAN DILUENT [Concomitant]
  13. TYLENOL [Concomitant]
  14. GLUCOTROL [Concomitant]
  15. ZOCOR [Concomitant]
  16. ALLEGRA [Concomitant]
  17. KDUR [Concomitant]
  18. BABY ASPIRIN [Concomitant]
  19. SALINE [Concomitant]

REACTIONS (13)
  - Catheter site haemorrhage [Recovering/Resolving]
  - Headache [Recovering/Resolving]
  - Device leakage [Recovered/Resolved]
  - Dyspnoea [Unknown]
  - Back pain [Unknown]
  - Dizziness [Unknown]
  - Oxygen saturation decreased [Unknown]
  - Condition aggravated [Unknown]
  - Hypotension [Recovering/Resolving]
  - Dyspnoea exertional [Unknown]
  - Tachycardia [Unknown]
  - Pulmonary mass [Unknown]
  - Brain operation [Unknown]
